FAERS Safety Report 6047287-X (Version None)
Quarter: 2009Q1

REPORT INFORMATION
  Report Type: 
  Country: None (occurrence: None)
  Receive Date: 20090122
  Receipt Date: 20090109
  Transmission Date: 20090719
  Serious: Yes (Death, Other)
  Sender: FDA-Public Use
  Company Number: US-ELI_LILLY_AND_COMPANY-US200811005827

PATIENT
  Age: 62 Year
  Sex: Female

DRUGS (2)
  1. PROZAC [Suspect]
     Indication: DEPRESSION
     Dosage: 40 MG, UNK
     Dates: end: 20080601
  2. ACETAMINOPHEN [Concomitant]

REACTIONS (4)
  - ACUTE HEPATIC FAILURE [None]
  - AUTOIMMUNE HEPATITIS [None]
  - HEPATIC CIRRHOSIS [None]
  - SEPSIS [None]
